FAERS Safety Report 4553770-6 (Version None)
Quarter: 2005Q1

REPORT INFORMATION
  Report Type: 
  Country: None (occurrence: None)
  Receive Date: 20050113
  Receipt Date: 20050113
  Transmission Date: 20050727
  Serious: Yes (Hospitalization, Other)
  Sender: FDA-Public Use
  Company Number: None

PATIENT
  Age: 56 Year
  Sex: Male
  Weight: 83.9154 kg

DRUGS (10)
  1. CORICIDIN D TABLETS [Suspect]
     Dosage: ORAL
     Route: 048
     Dates: start: 19990214, end: 19990214
  2. ALKA SELTZER PLUS COLD + FLU (APAP/CHLORPHENIRAMINE/    TABLETS [Suspect]
     Indication: DRUG USE FOR UNKNOWN INDICATION
     Dosage: INTERMITTENT ORAL
     Route: 048
     Dates: start: 19901205, end: 19990214
  3. CONTAC [Concomitant]
  4. DIMETAPP [Concomitant]
  5. ACEBUTOLOL [Concomitant]
  6. SECTRAL [Concomitant]
  7. MINOXIDIL [Concomitant]
  8. HYDROCHLOROTHIAZIDE [Concomitant]
  9. VERELAN [Concomitant]
  10. ACEBUTOLOL [Concomitant]

REACTIONS (12)
  - AMNESIA [None]
  - APHASIA [None]
  - CEREBROVASCULAR ACCIDENT [None]
  - CONFUSIONAL STATE [None]
  - DYSARTHRIA [None]
  - HEADACHE [None]
  - HEMIPARESIS [None]
  - INCOHERENT [None]
  - INJURY [None]
  - LOSS OF CONSCIOUSNESS [None]
  - PARALYSIS [None]
  - VISUAL DISTURBANCE [None]
